FAERS Safety Report 7914383-9 (Version None)
Quarter: 2011Q4

REPORT INFORMATION
  Report Type: 
  Country: None (occurrence: None)
  Receive Date: 20111115
  Receipt Date: 20111106
  Transmission Date: 20120403
  Serious: Yes (Hospitalization)
  Sender: FDA-Public Use
  Company Number: IT-MPIJNJ-2011-04907

PATIENT

DRUGS (6)
  1. VELCADE [Suspect]
     Indication: MULTIPLE MYELOMA
     Dosage: 2 UNK, UNK
     Route: 065
     Dates: start: 20090609, end: 20100222
  2. PREDNISONE [Concomitant]
     Indication: MULTIPLE MYELOMA
     Dosage: 50 MG, UNK
     Dates: start: 20090609, end: 20100222
  3. OSELTAMIVIR [Concomitant]
  4. ALKERAN [Concomitant]
     Indication: MULTIPLE MYELOMA
     Dosage: 2 MG, UNK
     Dates: start: 20090609, end: 20100222
  5. DEXAMETHASONE [Concomitant]
     Indication: MULTIPLE MYELOMA
  6. DOXORUBICIN HCL [Concomitant]
     Indication: MULTIPLE MYELOMA

REACTIONS (1)
  - PYREXIA [None]
